FAERS Safety Report 19756398 (Version 1)
Quarter: 2021Q3

REPORT INFORMATION
  Report Type: Report from Study
  Country: GB (occurrence: GB)
  Receive Date: 20210827
  Receipt Date: 20210827
  Transmission Date: 20211014
  Serious: Yes (Hospitalization, Other)
  Sender: FDA-Public Use
  Company Number: GB-PERRIGO-19GB014378

PATIENT

DRUGS (43)
  1. DEXAMETHASONE. [Suspect]
     Active Substance: DEXAMETHASONE
     Dosage: UNK
     Route: 065
  2. AFINITOR [Suspect]
     Active Substance: EVEROLIMUS
     Dosage: 2.5 MG, TUESDAY/THURSDAY/SATURDAY/SUNDAY
     Route: 048
     Dates: start: 20190717, end: 20200207
  3. DEXAMETHASONE. [Concomitant]
     Active Substance: DEXAMETHASONE
     Dosage: 9.2 MG, QD (4.6 MG)
     Route: 048
     Dates: start: 20200207, end: 20200221
  4. AFINITOR [Suspect]
     Active Substance: EVEROLIMUS
     Dosage: 5 MG MONDAY/WEDNESDAY/FRIDAY AND 2.5 MG TUESDAY/THURSDAY/SATURDAY/SUNDAY
     Route: 048
     Dates: start: 20200213
  5. AFINITOR [Suspect]
     Active Substance: EVEROLIMUS
     Dosage: 2.5 MG, BID, 5 MG MONDAY/\NEDNESDAY/FRIDAY AND 2.5 MG TUESDAY/THURSDAY/SATURDAY/SUNDAY
     Route: 048
     Dates: start: 20200213
  6. DEXAMETHASONE. [Concomitant]
     Active Substance: DEXAMETHASONE
     Dosage: 1.6 MG, QD
     Route: 048
     Dates: start: 20200215, end: 20200221
  7. RANITIDINE HYDROCHLORIDE. [Suspect]
     Active Substance: RANITIDINE HYDROCHLORIDE
     Indication: GASTROOESOPHAGEAL REFLUX DISEASE
     Dosage: UNK, BID
     Route: 048
  8. RANITIDINE HYDROCHLORIDE. [Suspect]
     Active Substance: RANITIDINE HYDROCHLORIDE
     Dosage: UNK
     Route: 048
  9. VANDETANIB. [Suspect]
     Active Substance: VANDETANIB
     Dosage: 100 MG, QOD (65 MG/M2)
     Route: 048
     Dates: start: 20191009, end: 20191014
  10. VANDETANIB. [Suspect]
     Active Substance: VANDETANIB
     Dosage: 100 MG, QOD
     Route: 048
     Dates: start: 20191018, end: 20200207
  11. AFINITOR [Suspect]
     Active Substance: EVEROLIMUS
     Indication: BRAIN STEM GLIOMA
     Dosage: 5 MG, MONDAY/WEDNESDAY/FRIDAY
     Route: 048
     Dates: start: 20190717, end: 20200207
  12. AFINITOR [Suspect]
     Active Substance: EVEROLIMUS
     Dosage: 2.5 MG, ON TUESDAY, THURSDAY, SATURDAY AND SUNDAY
     Route: 048
     Dates: start: 20190718, end: 20200207
  13. EVEROLIMUS. [Suspect]
     Active Substance: EVEROLIMUS
     Dosage: 5 MG ON MONDAY, WEDNESDAY AND FRIDAY AND 2.5 MG ON TUESDAY, THURSDAY, SATURDAY AND SUNDAY
     Route: 048
     Dates: start: 20191001
  14. DEXAMETHASONE. [Suspect]
     Active Substance: DEXAMETHASONE
     Dosage: 3.5 MG, BID (7 MILLIGRAM, QD)
     Route: 048
     Dates: start: 20200210
  15. VANDETANIB. [Suspect]
     Active Substance: VANDETANIB
     Dosage: 65 MILLIGRAM/SQ. METER, QD
     Route: 048
     Dates: start: 20200316, end: 20200420
  16. DEXAMETHASONE. [Concomitant]
     Active Substance: DEXAMETHASONE
     Dosage: WEANED TO 0.5MG SECOND DAILY
     Route: 048
     Dates: start: 20200221
  17. EVEROLIMUS. [Suspect]
     Active Substance: EVEROLIMUS
     Indication: BRAIN STEM GLIOMA
     Dosage: 2.5 MG, QD
     Route: 048
     Dates: start: 20200212
  18. EVEROLIMUS. [Suspect]
     Active Substance: EVEROLIMUS
     Dosage: 2.5 MG, QD
     Route: 048
     Dates: start: 20210207
  19. DEXAMETHASONE. [Suspect]
     Active Substance: DEXAMETHASONE
     Dosage: 4.6 MG, BID, 9.2 MILLIGRAM, QD
     Route: 048
     Dates: start: 20200207, end: 20200221
  20. VANDETANIB. [Suspect]
     Active Substance: VANDETANIB
     Dosage: 100 MG, QOD (54 MILLIGRAM/SQ. METER, QD)
     Route: 048
     Dates: start: 20200212, end: 20200302
  21. EVEROLIMUS. [Suspect]
     Active Substance: EVEROLIMUS
     Dosage: 2.5 MG, QOD ON TUESDAY, THURSDAY, SATURDAY AND SUNDAY
     Route: 048
     Dates: start: 20200207
  22. EVEROLIMUS. [Suspect]
     Active Substance: EVEROLIMUS
     Dosage: 5 MG, QODON MONDAY, WEDNESDAY AND FRIDAY
     Route: 048
     Dates: start: 20200207
  23. PARACETAMOL [Suspect]
     Active Substance: ACETAMINOPHEN
     Indication: PRODUCT USED FOR UNKNOWN INDICATION
     Dosage: UNK UNK, QD PM
     Route: 048
  24. LOPERAMIDE HYDROCHLORIDE. [Suspect]
     Active Substance: LOPERAMIDE HYDROCHLORIDE
     Indication: DIARRHOEA
     Dosage: 2 MG, 1 CAPSULE UP TO 4 TIMES A DAY
     Route: 065
  25. RANITIDINE HYDROCHLORIDE. [Suspect]
     Active Substance: RANITIDINE HYDROCHLORIDE
     Dosage: 50 MG, BID
     Route: 048
     Dates: start: 20191018
  26. DEXAMETHASONE. [Suspect]
     Active Substance: DEXAMETHASONE
     Indication: PRODUCT USED FOR UNKNOWN INDICATION
     Dosage: 1.6 MILLIGRAM, QD (1.6 MG, QD)
     Route: 048
     Dates: start: 20200215, end: 20200221
  27. DEXAMETHASONE. [Concomitant]
     Active Substance: DEXAMETHASONE
     Indication: PRODUCT USED FOR UNKNOWN INDICATION
     Dosage: 3.5 MG QD
     Route: 048
     Dates: start: 20200212, end: 20200221
  28. DEXAMETHASONE. [Concomitant]
     Active Substance: DEXAMETHASONE
     Dosage: 4 MG, BID, VARIABLE, WEANED TO 0.5MG SECOND DAILY
     Route: 048
     Dates: start: 20191101, end: 20200221
  29. EVEROLIMUS. [Suspect]
     Active Substance: EVEROLIMUS
     Dosage: 5 MG , QD
     Route: 048
     Dates: start: 20200212
  30. EVEROLIMUS. [Suspect]
     Active Substance: EVEROLIMUS
     Dosage: 2.5 MG, ON TUESDAY, THURSDAY, SATURDAY AND SUNDAY
     Route: 048
     Dates: start: 20191001
  31. EVEROLIMUS. [Suspect]
     Active Substance: EVEROLIMUS
     Dosage: 5 MG, QD
     Route: 048
     Dates: start: 20210207
  32. VANDETANIB. [Suspect]
     Active Substance: VANDETANIB
     Indication: BRAIN STEM GLIOMA
     Dosage: 65 MILLIGRAM/SQ. METER, QD
     Route: 048
     Dates: start: 20191009, end: 20191014
  33. LANSOPRAZOLE. [Suspect]
     Active Substance: LANSOPRAZOLE
     Indication: PRODUCT USED FOR UNKNOWN INDICATION
     Dosage: UNK
     Route: 065
  34. DEXAMETHASONE. [Concomitant]
     Active Substance: DEXAMETHASONE
     Dosage: 7 MG, QD (3.5 MG, BID)
     Route: 048
     Dates: start: 20200210
  35. EVEROLIMUS. [Suspect]
     Active Substance: EVEROLIMUS
     Dosage: 2.5 MG, ON TUESDAY, THURSDAY, SATURDAY AND SUNDAY
     Route: 048
     Dates: start: 20190717, end: 20191014
  36. DEXAMETHASONE. [Suspect]
     Active Substance: DEXAMETHASONE
     Dosage: 3.5 MILLIGRAM, QD
     Route: 048
     Dates: start: 20200212
  37. AFINITOR [Suspect]
     Active Substance: EVEROLIMUS
     Dosage: 5 MG ON MONDAY/WEDNESDAY/FRIDAY
     Route: 048
     Dates: start: 20190718, end: 20200207
  38. AFINITOR [Suspect]
     Active Substance: EVEROLIMUS
     Dosage: 5 MG QD, MONDAY/WEDNESDAY/FRIDAY; CUMULATIVE DOSE: 2035.0 MG
     Route: 048
     Dates: start: 20200212
  39. AFINITOR [Suspect]
     Active Substance: EVEROLIMUS
     Dosage: 2.5 MG, TUESDAY/THURSDAY/SATURDAY/SUNDAY
     Route: 048
     Dates: start: 20200212
  40. COTRIMOXAZOLE [Concomitant]
     Active Substance: SULFAMETHOXAZOLE\TRIMETHOPRIM
     Indication: PRODUCT USED FOR UNKNOWN INDICATION
     Dosage: 360 MG, BID (7.5 ML) ON SATURDAYS AND SUNDAYS
     Route: 048
  41. COTRIMOXAZOLE [Concomitant]
     Active Substance: SULFAMETHOXAZOLE\TRIMETHOPRIM
     Dosage: 360 MG, 1X/DAY
     Route: 065
  42. DEXAMETHASONE. [Concomitant]
     Active Substance: DEXAMETHASONE
     Dosage: UNK
     Route: 065
  43. EVEROLIMUS. [Suspect]
     Active Substance: EVEROLIMUS
     Dosage: 5 MG, QOD ON MONDAY, WEDNESDAY AND FRIDAY
     Route: 048
     Dates: start: 20190717, end: 20191014

REACTIONS (27)
  - Myoclonus [Recovered/Resolved]
  - Hypophagia [Not Recovered/Not Resolved]
  - Lymphocyte count decreased [Not Recovered/Not Resolved]
  - Hypophosphataemia [Recovered/Resolved]
  - Blood creatinine increased [Unknown]
  - Reflux gastritis [Recovered/Resolved]
  - Gastrooesophageal reflux disease [Recovered/Resolved]
  - Blood cholesterol increased [Not Recovered/Not Resolved]
  - Mucosal inflammation [Recovered/Resolved]
  - Ocular hyperaemia [Recovered/Resolved]
  - Facial paralysis [Unknown]
  - Disease progression [Unknown]
  - Hemiparesis [Unknown]
  - Neutrophil count decreased [Recovered/Resolved]
  - Hypertension [Not Recovered/Not Resolved]
  - Blood triglycerides increased [Unknown]
  - Ataxia [Unknown]
  - Product use in unapproved indication [Unknown]
  - Alanine aminotransferase increased [Recovered/Resolved]
  - Brain stem glioma [Unknown]
  - Malignant neoplasm progression [Unknown]
  - Medication error [Unknown]
  - Off label use [Unknown]
  - Electrocardiogram QT prolonged [Recovered/Resolved]
  - Flatulence [Recovered/Resolved]
  - Abdominal distension [Recovered/Resolved]
  - White blood cell count decreased [Not Recovered/Not Resolved]

NARRATIVE: CASE EVENT DATE: 20190111
